FAERS Safety Report 5641021-0 (Version None)
Quarter: 2008Q1

REPORT INFORMATION
  Report Type: 
  Country: None (occurrence: None)
  Receive Date: 20080225
  Receipt Date: 20080211
  Transmission Date: 20080703
  Serious: Yes (Hospitalization)
  Sender: FDA-Public Use
  Company Number: 8029945

PATIENT
  Age: 96 Year
  Sex: Female

DRUGS (3)
  1. KEPPRA [Suspect]
     Indication: PARTIAL SEIZURES
     Dosage: 500 MG 2/D PO
     Route: 048
     Dates: end: 20080201
  2. KEPPRA [Suspect]
     Indication: PARTIAL SEIZURES
     Dates: start: 20080201
  3. DEPAKENE [Concomitant]

REACTIONS (5)
  - CLONUS [None]
  - DYSPHAGIA [None]
  - EPILEPSY [None]
  - MOTOR DYSFUNCTION [None]
  - STATUS EPILEPTICUS [None]
